FAERS Safety Report 8841812 (Version 2)
Quarter: 2012Q4

REPORT INFORMATION
  Report Type: 
  Country: FR (occurrence: FR)
  Receive Date: 20121016
  Receipt Date: 20121019
  Transmission Date: 20130627
  Serious: Yes (Other)
  Sender: FDA-Public Use
  Company Number: FR-BAYER-2012-105533

PATIENT
  Age: 20 Year
  Sex: Female

DRUGS (1)
  1. JASMINE [Suspect]
     Dosage: UNK

REACTIONS (1)
  - Pyelonephritis [None]
